FAERS Safety Report 5406657-0 (Version None)
Quarter: 2007Q3

REPORT INFORMATION
  Report Type: 
  Country: None (occurrence: None)
  Receive Date: 20070806
  Receipt Date: 20070731
  Transmission Date: 20080115
  Serious: Yes (Hospitalization)
  Sender: FDA-Public Use
  Company Number: US-PFIZER INC-2007063126

PATIENT
  Sex: Female
  Weight: 86.2 kg

DRUGS (5)
  1. GEODON [Suspect]
     Indication: BIPOLAR DISORDER
     Route: 048
  2. CLONAZEPAM [Suspect]
     Indication: ANXIETY
     Route: 048
     Dates: start: 20070618, end: 20070713
  3. LORAZEPAM [Suspect]
     Indication: ANXIETY
     Route: 048
     Dates: start: 20070713, end: 20070713
  4. EFFEXOR XR [Concomitant]
  5. MIRCETTE [Concomitant]

REACTIONS (5)
  - ANXIETY [None]
  - DYSKINESIA [None]
  - FEELING ABNORMAL [None]
  - HYPERVENTILATION [None]
  - INSOMNIA [None]
